FAERS Safety Report 8891453 (Version 2)
Quarter: 2013Q1

REPORT INFORMATION
  Report Type: Spontaneous
  Country: US (occurrence: None)
  Receive Date: 20121031
  Receipt Date: 20121113
  Transmission Date: 20140127
  Serious: Yes (Other)
  Sender: FDA-Public Use
  Company Number: DSA_58132_2012

PATIENT
  Sex: Female
  Weight: 50.8 kg

DRUGS (4)
  1. XENAZINE 25 MG (NOT SPECIFIED) [Suspect]
     Indication: HUNTINGTON^S DISEASE
     Route: 048
     Dates: start: 200902
  2. RISPERDAL [Concomitant]
  3. NAMENDA [Concomitant]
  4. DULCOLAX [Concomitant]

REACTIONS (6)
  - Mood swings [None]
  - Aggression [None]
  - Constipation [None]
  - Irritability [None]
  - Muscle rigidity [None]
  - Communication disorder [None]
